FAERS Safety Report 14289728 (Version 2)
Quarter: 2017Q4

REPORT INFORMATION
  Report Type: Spontaneous
  Country: SE (occurrence: SE)
  Receive Date: 20171215
  Receipt Date: 20171225
  Transmission Date: 20180321
  Serious: Yes (Life-Threatening, Other)
  Sender: FDA-Public Use
  Company Number: SE-BRISTOL-MYERS SQUIBB COMPANY-BMS-2017-111767

PATIENT
  Age: 91 Year
  Sex: Female

DRUGS (1)
  1. ELIQUIS [Suspect]
     Active Substance: APIXABAN
     Indication: CEREBROVASCULAR ACCIDENT PROPHYLAXIS
     Dosage: 5 MG, DAILY
     Route: 048
     Dates: end: 201711

REACTIONS (1)
  - Hepatic haemorrhage [Not Recovered/Not Resolved]

NARRATIVE: CASE EVENT DATE: 20171116
